FAERS Safety Report 5233800-9 (Version None)
Quarter: 2007Q1

REPORT INFORMATION
  Report Type: 
  Country: None (occurrence: None)
  Receive Date: 20061208
  Receipt Date: 20060223
  Transmission Date: 20070707
  Serious: Yes (Other)
  Sender: FDA-Public Use
  Company Number: 2006UW03091

PATIENT
  Age: 66 Year
  Sex: Female
  Weight: 76.657 kg

DRUGS (3)
  1. CRESTOR [Suspect]
     Indication: BLOOD CHOLESTEROL INCREASED
     Dosage: 10 MG PO
     Route: 048
     Dates: end: 20060222
  2. AMLODIPINE W/BENAZEPRIL [Concomitant]
  3. METOPROLOL SUCCINATE [Concomitant]

REACTIONS (5)
  - ASTHENIA [None]
  - MYALGIA [None]
  - NAUSEA [None]
  - PYREXIA [None]
  - RASH [None]
